FAERS Safety Report 8361129-9 (Version None)
Quarter: 2012Q2

REPORT INFORMATION
  Report Type: 
  Country: None (occurrence: None)
  Receive Date: 20120514
  Receipt Date: 20120502
  Transmission Date: 20120825
  Serious: Yes (Other)
  Sender: FDA-Public Use
  Company Number: 2012MA005980

PATIENT
  Age: 53 Year
  Sex: Female

DRUGS (2)
  1. ONDANSETRON [Concomitant]
  2. GEMCITABINE HYDROCHLORIDE [Suspect]
     Indication: BREAST CANCER METASTATIC
     Dosage: 1800 MG;DAY1;IV
     Route: 042

REACTIONS (2)
  - INAPPROPRIATE AFFECT [None]
  - DIZZINESS [None]
